FAERS Safety Report 8772459 (Version 3)
Quarter: 2013Q1

REPORT INFORMATION
  Report Type: Report from Study
  Country: JP (occurrence: JP)
  Receive Date: 20120905
  Receipt Date: 20130320
  Transmission Date: 20140127
  Serious: Yes (Other)
  Sender: FDA-Public Use
  Company Number: JP-009507513-1208JPN010277

PATIENT
  Age: 37 Year
  Sex: Female
  Weight: 40 kg

DRUGS (7)
  1. PEGINTRON [Suspect]
     Indication: CHRONIC HEPATITIS C
     Dosage: 1.5 MICROGRAM PER KILOGRAM, QW
     Route: 058
     Dates: start: 20120620
  2. REBETOL [Suspect]
     Indication: CHRONIC HEPATITIS C
     Dosage: 600 MG, QD
     Route: 048
     Dates: start: 20120620, end: 20120704
  3. REBETOL [Suspect]
     Dosage: 200 MG, QD
     Route: 048
     Dates: start: 20120704, end: 20120815
  4. REBETOL [Suspect]
     Dosage: 200 MG, QD
     Route: 048
     Dates: start: 20120915
  5. TELAVIC [Suspect]
     Indication: CHRONIC HEPATITIS C
     Dosage: UNK UNK, TID
     Route: 048
     Dates: start: 20120620, end: 20120808
  6. LOXONIN [Concomitant]
     Indication: PROPHYLAXIS
     Dosage: DOSE: 60MG/DAY AS NEEDED, FORMULATION:POR
     Route: 048
     Dates: start: 20120627
  7. LOXONIN [Concomitant]
     Dosage: 60 MG, UNK
     Route: 048

REACTIONS (5)
  - Blood uric acid increased [Recovered/Resolved]
  - Dysgeusia [Recovered/Resolved]
  - Blood creatinine increased [Recovered/Resolved]
  - Haemoglobin decreased [Recovered/Resolved]
  - Decreased appetite [Recovered/Resolved]
